FAERS Safety Report 9173219 (Version 2)
Quarter: 2013Q2

REPORT INFORMATION
  Report Type: Spontaneous
  Country: US (occurrence: None)
  Receive Date: 20130315
  Receipt Date: 20130522
  Transmission Date: 20140414
  Serious: Yes (Hospitalization)
  Sender: FDA-Public Use
  Company Number: SP06466

PATIENT
  Age: 74 Year
  Sex: Female
  Weight: 66.23 kg

DRUGS (2)
  1. XIFAXAN [Suspect]
     Indication: HEPATIC ENCEPHALOPATHY
     Dosage: 1100 MG (550 MG,2 IN 1 D), ORAL
     Route: 048
     Dates: start: 20121112
  2. URSODIOL [Concomitant]

REACTIONS (2)
  - Headache [None]
  - Blood pressure increased [None]
